FAERS Safety Report 6427489-0 (Version None)
Quarter: 2009Q4

REPORT INFORMATION
  Report Type: 
  Country: None (occurrence: None)
  Receive Date: 20091104
  Receipt Date: 20091023
  Transmission Date: 20100525
  Serious: Yes (Hospitalization)
  Sender: FDA-Public Use
  Company Number: PHHY2009ZA45912

PATIENT
  Sex: Male
  Weight: 102 kg

DRUGS (3)
  1. TEGRETOL [Suspect]
     Indication: EPILEPSY
     Dosage: UNK
  2. PERINDOPRIL [Concomitant]
     Indication: HYPERTENSION
     Dosage: UNK
     Dates: start: 20090727
  3. TAREG [Concomitant]
     Dosage: UNK
     Dates: start: 20090921

REACTIONS (4)
  - COUGH [None]
  - EPICONDYLITIS [None]
  - HYPERTENSION [None]
  - SURGERY [None]
